FAERS Safety Report 8483642 (Version 9)
Quarter: 2013Q1

REPORT INFORMATION
  Report Type: Report from Study
  Country: GB (occurrence: GB)
  Receive Date: 20120329
  Receipt Date: 20130214
  Transmission Date: 20140127
  Serious: Yes (Death, Hospitalization)
  Sender: FDA-Public Use
  Company Number: GB-ROCHE-1053454

PATIENT
  Age: 70 Year
  Sex: Female
  Weight: 72.5 kg

DRUGS (12)
  1. VEMURAFENIB [Suspect]
     Indication: MALIGNANT MELANOMA
     Dosage: DATOE OF LAST DOSE PRIOR TO SAE 22/MAR/2012 , PERMANENTLY DISCONTINUED ON 26/MAR/2012.
     Route: 048
     Dates: start: 20111129, end: 20120326
  2. AMLODIPINE [Concomitant]
     Route: 065
     Dates: end: 20120323
  3. AMLODIPINE [Concomitant]
     Route: 065
     Dates: end: 20120323
  4. DOXAZOSIN [Concomitant]
     Route: 065
     Dates: end: 20120323
  5. DOXAZOSIN [Concomitant]
     Route: 065
     Dates: end: 20120323
  6. LISINOPRIL [Concomitant]
     Route: 065
     Dates: end: 20120323
  7. LISINOPRIL [Concomitant]
     Route: 065
     Dates: end: 20120323
  8. METOPROLOL [Concomitant]
     Route: 065
     Dates: end: 20120325
  9. METOPROLOL [Concomitant]
     Dosage: 20MG / MG
     Route: 042
     Dates: start: 20120327, end: 20120327
  10. ROSUVASTATIN [Concomitant]
     Route: 065
     Dates: end: 20120328
  11. ROSUVASTATIN [Concomitant]
     Route: 065
     Dates: end: 20120328
  12. SLOW-K [Concomitant]
     Route: 065
     Dates: start: 20120127

REACTIONS (1)
  - Torsade de pointes [Fatal]
